FAERS Safety Report 4554585-5 (Version None)
Quarter: 2005Q1

REPORT INFORMATION
  Report Type: 
  Country: None (occurrence: None)
  Receive Date: 20050118
  Receipt Date: 20050111
  Transmission Date: 20050727
  Serious: Yes (Hospitalization)
  Sender: FDA-Public Use
  Company Number: PHRM2005FR00518

PATIENT
  Age: 71 Year
  Sex: Male

DRUGS (8)
  1. ZYLORIC ^GLAXO WELLCOME^ [Suspect]
     Dosage: 200 MG, QD
     Route: 048
     Dates: start: 20010615
  2. ZOCOR [Suspect]
     Dosage: 10 MG, QD
     Route: 048
     Dates: start: 20000615
  3. BURINEX [Suspect]
     Dosage: 1 MG, QD
     Route: 048
     Dates: start: 19990615
  4. TENORMIN [Suspect]
     Dosage: 50 MG, UNK
     Route: 048
     Dates: start: 20000615
  5. CELLCEPT [Suspect]
     Dosage: 500 MG, BID
     Route: 048
     Dates: start: 20030615
  6. OMEPRAZOLE [Concomitant]
     Dosage: 20 MG, QD
     Route: 048
     Dates: start: 20020615
  7. NEORAL [Suspect]
     Indication: RENAL TRANSPLANT
     Dosage: 200 MG DAILY
     Route: 048
     Dates: start: 19960615
  8. SANDIMMUNE [Suspect]
     Indication: RENAL TRANSPLANT
     Route: 048
     Dates: start: 19941101, end: 19960601

REACTIONS (12)
  - CENTRAL NERVOUS SYSTEM LYMPHOMA [None]
  - CHOLECYSTECTOMY [None]
  - GENERAL PHYSICAL HEALTH DETERIORATION [None]
  - GLOMERULONEPHRITIS PROLIFERATIVE [None]
  - HEADACHE [None]
  - HYPERTHYROIDISM [None]
  - LYMPHOMA [None]
  - MOTOR DYSFUNCTION [None]
  - NERVOUS SYSTEM DISORDER [None]
  - RHABDOMYOLYSIS [None]
  - SOMNOLENCE [None]
  - WEIGHT DECREASED [None]
